FAERS Safety Report 24271319 (Version 2)
Quarter: 2024Q4

REPORT INFORMATION
  Report Type: Spontaneous
  Country: US (occurrence: US)
  Receive Date: 20240901
  Receipt Date: 20241214
  Transmission Date: 20250114
  Serious: No
  Sender: LUPIN
  Company Number: US-LUPIN PHARMACEUTICALS INC.-2024-08252

PATIENT

DRUGS (1)
  1. ALBUTEROL SULFATE [Suspect]
     Active Substance: ALBUTEROL SULFATE
     Indication: Dyspnoea
     Dosage: UNK UNK, TID (2 PUFFS)
     Dates: start: 20240806

REACTIONS (3)
  - Drug dose omission by device [Unknown]
  - Wrong technique in product usage process [Unknown]
  - No adverse event [Unknown]
